FAERS Safety Report 4633232-8 (Version None)
Quarter: 2005Q2

REPORT INFORMATION
  Report Type: 
  Country: None (occurrence: None)
  Receive Date: 20050408
  Receipt Date: 20050330
  Transmission Date: 20051028
  Serious: Yes (Death)
  Sender: FDA-Public Use
  Company Number: 2005042639

PATIENT
  Sex: Male

DRUGS (3)
  1. LYRICA [Suspect]
     Indication: BACK PAIN
     Dosage: 150 MG, ORAL
     Route: 048
     Dates: end: 20041009
  2. TRAMADOL HCL [Concomitant]
  3. GABAPENTIN [Concomitant]

REACTIONS (3)
  - ALCOHOL POISONING [None]
  - CIRCULATORY COLLAPSE [None]
  - OVERDOSE [None]
